FAERS Safety Report 15418251 (Version 2)
Quarter: 2018Q4

REPORT INFORMATION
  Report Type: Not Available
  Country: US (occurrence: US)
  Receive Date: 20180924
  Receipt Date: 20181121
  Transmission Date: 20190204
  Serious: No
  Sender: FDA-Public Use
  Company Number: US-NEUROCRINE BIOSCIENCES INC.-2018NBI02683

PATIENT
  Age: 56 Year
  Sex: Female

DRUGS (29)
  1. LORAZEPAM. [Concomitant]
     Active Substance: LORAZEPAM
     Dosage: AS REQUIRED
     Route: 048
  2. LEVOTHYROXINE. [Concomitant]
     Active Substance: LEVOTHYROXINE
     Route: 048
  3. METOPROLOL TARTRATE. [Concomitant]
     Active Substance: METOPROLOL TARTRATE
     Dosage: HALF TABLET TWICE A DAY
     Route: 048
  4. POTASSIUM CHLORIDE. [Concomitant]
     Active Substance: POTASSIUM CHLORIDE
     Route: 048
  5. ACIDOPHILUS [Concomitant]
     Active Substance: LACTOBACILLUS ACIDOPHILUS
     Route: 048
  6. HYDROCODONE BITARTRATE AND ACETAMINOPHEN [Concomitant]
     Active Substance: ACETAMINOPHEN\HYDROCODONE BITARTRATE
     Dosage: 5-325 MG EVERY 4 TO 6 HOURS AS REQUIRED
  7. ASPIRIN 81 [Concomitant]
     Active Substance: ASPIRIN
     Dosage: EVERY MORNING
  8. ACETAMINOPHEN. [Concomitant]
     Active Substance: ACETAMINOPHEN
  9. ANTACID CALCIUM [Concomitant]
     Dosage: 1 TO 2 TABLETS EVERY 6 HOURS AS REQUIRED
     Route: 048
  10. OLANZAPINE. [Concomitant]
     Active Substance: OLANZAPINE
     Indication: SCHIZOPHRENIA
     Dosage: ONE TABLET EVERY BED TIME
     Route: 048
  11. MAGNESIUM OXIDE. [Concomitant]
     Active Substance: MAGNESIUM OXIDE
     Route: 048
  12. WARFARIN SODIUM. [Concomitant]
     Active Substance: WARFARIN SODIUM
     Route: 048
  13. MIDODRINE [Concomitant]
     Active Substance: MIDODRINE
     Route: 048
  14. MELATONIN [Concomitant]
     Active Substance: MELATONIN
     Dosage: 2 TABLETS AT NIGHT
     Route: 048
  15. LEVEMIR [Concomitant]
     Active Substance: INSULIN DETEMIR
     Dosage: 100 UNIT/ML AT BED TIME
  16. PROBENECID. [Concomitant]
     Active Substance: PROBENECID
     Route: 048
  17. ROSUVASTATIN. [Concomitant]
     Active Substance: ROSUVASTATIN
  18. TORSEMIDE. [Concomitant]
     Active Substance: TORSEMIDE
     Route: 048
  19. FOLIC ACID. [Concomitant]
     Active Substance: FOLIC ACID
     Route: 048
  20. VENTOLIN HFA [Concomitant]
     Active Substance: ALBUTEROL SULFATE
     Dosage: 2 PUFFS EVERY FOUR HOURS AS REQUIRED
  21. INGREZZA [Suspect]
     Active Substance: VALBENAZINE
     Dates: start: 20180620, end: 20180820
  22. FLUPHENAZINE DECANOATE. [Concomitant]
     Active Substance: FLUPHENAZINE DECANOATE
     Indication: SCHIZOPHRENIA
     Dosage: 1.5 ML (37.5 MG)
     Route: 030
  23. PANTOPRAZOLE [Concomitant]
     Active Substance: PANTOPRAZOLE
     Route: 048
  24. FISH OIL [Concomitant]
     Active Substance: FISH OIL
  25. INGREZZA [Suspect]
     Active Substance: VALBENAZINE
     Indication: EXTRAPYRAMIDAL DISORDER
     Route: 048
     Dates: start: 20180613, end: 20180619
  26. CELECOXIB. [Concomitant]
     Active Substance: CELECOXIB
     Dosage: 200 MG ONCE DAILY AS REQUIRED
     Route: 048
  27. AMIODARONE [Concomitant]
     Active Substance: AMIODARONE
     Route: 048
  28. COLCRYS [Concomitant]
     Active Substance: COLCHICINE
     Route: 048
  29. IBUPROFEN. [Concomitant]
     Active Substance: IBUPROFEN
     Dosage: 3 TABLETS (600 MG) EVERY 4 HOURS AS REQUIRED

REACTIONS (3)
  - Musculoskeletal stiffness [Recovered/Resolved]
  - Off label use [Unknown]
  - Tremor [Recovered/Resolved]

NARRATIVE: CASE EVENT DATE: 20180802
